FAERS Safety Report 8903163 (Version 1)
Quarter: 2012Q4

REPORT INFORMATION
  Report Type: 
  Country: US (occurrence: US)
  Receive Date: 20121112
  Receipt Date: 20121112
  Transmission Date: 20130627
  Serious: Yes (Hospitalization)
  Sender: FDA-Public Use
  Company Number: US-AMGEN-USASP2012071086

PATIENT
  Age: 71 Year
  Sex: Female

DRUGS (2)
  1. ENBREL [Suspect]
     Indication: RHEUMATOID ARTHRITIS
     Dosage: 50 mg, qwk
     Dates: start: 20020401
  2. METHOTREXATE [Concomitant]
     Dosage: UNK

REACTIONS (5)
  - Thrombosis [Not Recovered/Not Resolved]
  - Infection [Not Recovered/Not Resolved]
  - Fall [Unknown]
  - Injury [Not Recovered/Not Resolved]
  - Haematoma [Not Recovered/Not Resolved]
